FAERS Safety Report 20949793 (Version 4)
Quarter: 2022Q3

REPORT INFORMATION
  Report Type: Report from Study
  Country: US (occurrence: US)
  Receive Date: 20220613
  Receipt Date: 20220805
  Transmission Date: 20221027
  Serious: No
  Sender: FDA-Public Use
  Company Number: US-SAGE-2022SAGE000052

PATIENT
  Age: 28 Year
  Sex: Female

DRUGS (6)
  1. ZULRESSO [Suspect]
     Active Substance: BREXANOLONE
     Indication: Perinatal depression
     Dosage: BAG 1
     Route: 042
     Dates: start: 20220428
  2. ZULRESSO [Suspect]
     Active Substance: BREXANOLONE
     Dosage: BAG 2
     Route: 042
     Dates: start: 20220428
  3. ZULRESSO [Suspect]
     Active Substance: BREXANOLONE
     Dosage: BAG 3
     Route: 042
     Dates: start: 20220429
  4. ZULRESSO [Suspect]
     Active Substance: BREXANOLONE
     Dosage: BAG 4
     Route: 042
     Dates: start: 20220429
  5. ZULRESSO [Suspect]
     Active Substance: BREXANOLONE
     Dosage: BAG 5
     Route: 042
     Dates: start: 20220430
  6. ZULRESSO [Suspect]
     Active Substance: BREXANOLONE
     Dosage: BAG 6
     Route: 042
     Dates: start: 20220430, end: 20220501

REACTIONS (2)
  - Product administration interrupted [Unknown]
  - Product administration error [Unknown]

NARRATIVE: CASE EVENT DATE: 20220428
